FAERS Safety Report 19820225 (Version 1)
Quarter: 2021Q3

REPORT INFORMATION
  Report Type: Spontaneous
  Country: US (occurrence: US)
  Receive Date: 20210913
  Receipt Date: 20210913
  Transmission Date: 20211014
  Serious: No
  Sender: FDA-Public Use
  Company Number: US-SA-2021SA299581

PATIENT
  Age: 49 Year
  Sex: Male

DRUGS (1)
  1. DUPIXENT [Suspect]
     Active Substance: DUPILUMAB
     Dosage: 300MG/2ML, 300 MG, OTHER
     Route: 058
     Dates: start: 202106

REACTIONS (2)
  - Headache [Unknown]
  - Head discomfort [Unknown]

NARRATIVE: CASE EVENT DATE: 20210621
